FAERS Safety Report 26209225 (Version 1)
Quarter: 2025Q4

REPORT INFORMATION
  Report Type: Spontaneous
  Country: US (occurrence: US)
  Receive Date: 20251229
  Receipt Date: 20251229
  Transmission Date: 20260118
  Serious: No
  Sender: ROCHE
  Company Number: US-ROCHE-10000467273

PATIENT

DRUGS (1)
  1. PHESGO [Suspect]
     Active Substance: HYALURONIDASE-ZZXF\PERTUZUMAB\TRASTUZUMAB
     Indication: Product used for unknown indication
     Dosage: 600 MG PERTUZUMAB, 600 MG TRASTUZUMAB, AND 20,000 UNITS HYALURONIDASE/10 ML

REACTIONS (2)
  - Product storage error [Unknown]
  - No adverse event [Unknown]
